FAERS Safety Report 4638304-X (Version None)
Quarter: 2005Q2

REPORT INFORMATION
  Report Type: 
  Country: None (occurrence: None)
  Receive Date: 20050418
  Receipt Date: 20050415
  Transmission Date: 20051028
  Serious: Yes (Other)
  Sender: FDA-Public Use
  Company Number: CH-MERCK-0504CHE00024

PATIENT
  Age: 84 Year
  Sex: Female

DRUGS (6)
  1. FOSAMAX [Suspect]
     Route: 048
     Dates: start: 20020101
  2. METHOTREXATE [Concomitant]
     Indication: POLYARTHRITIS
     Route: 048
  3. PREDNISONE [Concomitant]
     Indication: POLYARTHRITIS
     Route: 048
  4. DICLOFENAC SODIUM [Concomitant]
     Route: 048
  5. LEVOTHYROXINE SODIUM [Concomitant]
     Indication: HYPOTHYROIDISM
     Route: 048
  6. ALLOPURINOL [Concomitant]
     Route: 048

REACTIONS (2)
  - OSTEITIS [None]
  - OSTEONECROSIS [None]
